FAERS Safety Report 23286789 (Version 1)
Quarter: 2023Q4

REPORT INFORMATION
  Report Type: Spontaneous
  Country: US (occurrence: US)
  Receive Date: 20231212
  Receipt Date: 20231212
  Transmission Date: 20240110
  Serious: Yes (Other)
  Sender: FDA-Public Use
  Company Number: US-PROCTER+GAMBLE-PH23010752

PATIENT
  Age: 62 Year
  Sex: Male

DRUGS (3)
  1. PEPTO-BISMOL NOS [Suspect]
     Active Substance: BISMUTH SUBSALICYLATE OR CALCIUM CARBONATE
     Dosage: TAKING 3 TO 4 DOSES (1575-2100 MG) PER DAY 4 TO 5 DAYS PER WEEK FOR MANY YEARS
     Route: 048
  2. OMEPRAZOLE [Concomitant]
     Active Substance: OMEPRAZOLE
  3. SIMVASTATIN [Concomitant]
     Active Substance: SIMVASTATIN

REACTIONS (14)
  - Chronic kidney disease [Unknown]
  - Metal poisoning [Unknown]
  - Nephropathy toxic [Unknown]
  - Renal arteriosclerosis [Unknown]
  - Renal tubular atrophy [Unknown]
  - Kidney fibrosis [Unknown]
  - Focal segmental glomerulosclerosis [Unknown]
  - Biopsy kidney abnormal [Unknown]
  - Glomerular filtration rate decreased [Unknown]
  - Blood creatinine increased [Unknown]
  - Blood pressure systolic increased [Unknown]
  - Protein urine present [Unknown]
  - Blood urine present [Unknown]
  - Incorrect product administration duration [Unknown]
